FAERS Safety Report 26067125 (Version 3)
Quarter: 2025Q4

REPORT INFORMATION
  Report Type: Report from Study
  Country: CA (occurrence: CA)
  Receive Date: 20251119
  Receipt Date: 20251125
  Transmission Date: 20260118
  Serious: Yes (Other)
  Sender: JOHNSON AND JOHNSON
  Company Number: CA-JNJFOC-20250712037

PATIENT
  Age: 74 Year
  Sex: Male
  Weight: 62 kg

DRUGS (6)
  1. SIMPONI [Suspect]
     Active Substance: GOLIMUMAB
     Indication: Juvenile idiopathic arthritis
     Route: 041
     Dates: start: 20241023
  2. SIMPONI [Suspect]
     Active Substance: GOLIMUMAB
     Indication: Rheumatoid arthritis
     Route: 041
     Dates: start: 20250715
  3. SIMPONI [Suspect]
     Active Substance: GOLIMUMAB
     Route: 041
     Dates: start: 20241023
  4. SIMPONI [Suspect]
     Active Substance: GOLIMUMAB
     Route: 041
  5. CLOPIDOGREL [Concomitant]
     Active Substance: CLOPIDOGREL BISULFATE
     Indication: Product used for unknown indication
  6. ASPIRIN [Concomitant]
     Active Substance: ASPIRIN
     Indication: Product used for unknown indication

REACTIONS (8)
  - Nephrolithiasis [Unknown]
  - Oral herpes [Not Recovered/Not Resolved]
  - Arthralgia [Unknown]
  - Pruritus [Unknown]
  - Oral disorder [Recovered/Resolved]
  - Herpes virus infection [Unknown]
  - Contusion [Unknown]
  - Peripheral swelling [Unknown]

NARRATIVE: CASE EVENT DATE: 20250703
